FAERS Safety Report 13059305 (Version 2)
Quarter: 2017Q1

REPORT INFORMATION
  Report Type: Report from Study
  Country: JP (occurrence: JP)
  Receive Date: 20161223
  Receipt Date: 20170131
  Transmission Date: 20170428
  Serious: Yes (Hospitalization)
  Sender: FDA-Public Use
  Company Number: JP-GUERBET LLC-1061234

PATIENT
  Age: 47 Year
  Sex: Male

DRUGS (9)
  1. MORPHINE HYDROCHLORIDE HYDRATE [Concomitant]
     Active Substance: MORPHINE HYDROCHLORIDE
  2. CISPLATIN. [Concomitant]
     Active Substance: CISPLATIN
     Route: 013
     Dates: start: 20140110, end: 20140110
  3. CISPLATIN. [Concomitant]
     Active Substance: CISPLATIN
     Route: 013
     Dates: start: 20140120, end: 20140120
  4. EMBOSPHERE [Concomitant]
     Route: 013
     Dates: start: 20140414, end: 20140414
  5. LIPIODOL [Suspect]
     Active Substance: ETHIODIZED OIL
     Indication: TRANSCATHETER ARTERIAL CHEMOEMBOLISATION
     Route: 013
     Dates: start: 20140110, end: 20140110
  6. ATROPINE SULFATE. [Concomitant]
     Active Substance: ATROPINE SULFATE
  7. EPIRUBICIN HYDROCHLORIDE. [Concomitant]
     Active Substance: EPIRUBICIN HYDROCHLORIDE
     Route: 013
     Dates: start: 20140110, end: 20140110
  8. FLUOROURACIL. [Concomitant]
     Active Substance: FLUOROURACIL
     Route: 013
     Dates: start: 20140110, end: 20140114
  9. FLUOROURACIL. [Concomitant]
     Active Substance: FLUOROURACIL
     Route: 013
     Dates: start: 20140120, end: 20140124

REACTIONS (8)
  - Nausea [Recovered/Resolved]
  - Pyrexia [Recovered/Resolved]
  - Vomiting [Recovered/Resolved]
  - Pain [Recovered/Resolved]
  - Decreased appetite [Recovered/Resolved]
  - Off label use [Recovered/Resolved]
  - Malaise [Recovered/Resolved]
  - Overdose [Recovered/Resolved]

NARRATIVE: CASE EVENT DATE: 20140110
